FAERS Safety Report 24051897 (Version 2)
Quarter: 2024Q4

REPORT INFORMATION
  Report Type: Report from Study
  Country: GB (occurrence: GB)
  Receive Date: 20240704
  Receipt Date: 20241209
  Transmission Date: 20250115
  Serious: Yes (Hospitalization, Other)
  Sender: ALEXION PHARMACEUTICALS
  Company Number: 2024A147976

PATIENT

DRUGS (1)
  1. TEZEPELUMAB [Suspect]
     Active Substance: TEZEPELUMAB
     Indication: Asthma
     Dosage: 210 MILLIGRAM, UNK, FREQUENCY: Q4WK

REACTIONS (4)
  - Fall [Recovering/Resolving]
  - Pneumonia [Recovering/Resolving]
  - Kidney infection [Recovering/Resolving]
  - Product dose omission issue [Recovering/Resolving]
